FAERS Safety Report 6713432-3 (Version None)
Quarter: 2010Q2

REPORT INFORMATION
  Report Type: 
  Country: None (occurrence: None)
  Receive Date: 20100506
  Receipt Date: 20100428
  Transmission Date: 20101027
  Serious: Yes (Other)
  Sender: FDA-Public Use
  Company Number: US-ROCHE-701152

PATIENT
  Sex: Male
  Weight: 93.1 kg

DRUGS (3)
  1. BEVACIZUMAB [Suspect]
     Indication: MALIGNANT MELANOMA
     Route: 042
     Dates: start: 20100331
  2. IPILIMUMAB [Suspect]
     Indication: MALIGNANT MELANOMA
     Route: 042
     Dates: start: 20100331
  3. LISINOPRIL [Concomitant]
     Route: 048

REACTIONS (1)
  - UVEITIS [None]
